FAERS Safety Report 13555222 (Version 1)
Quarter: 2017Q2

REPORT INFORMATION
  Report Type: Spontaneous
  Country: FR (occurrence: FR)
  Receive Date: 20170517
  Receipt Date: 20170517
  Transmission Date: 20170830
  Serious: Yes (Other)
  Sender: FDA-Public Use
  Company Number: FR-PFIZER INC-2017206940

PATIENT
  Age: 79 Year
  Sex: Male

DRUGS (9)
  1. LYRICA [Suspect]
     Active Substance: PREGABALIN
     Indication: PAIN
     Dosage: 25 MG, 2X/DAY, MORNING AND EVENING
     Route: 048
     Dates: start: 20170412, end: 20170424
  2. LAROXYL [Suspect]
     Active Substance: AMITRIPTYLINE
     Indication: PAIN
     Dosage: 5 GTT, 1X/DAY, IN THE EVENING
     Route: 048
     Dates: start: 20170413, end: 20170424
  3. ELIQUIS [Concomitant]
     Active Substance: APIXABAN
     Dosage: 5 MG, 2X/DAY, MORNING AND  EVENING
  4. RIVOTRIL [Concomitant]
     Active Substance: CLONAZEPAM
     Dosage: UNK
  5. LAMALINE [Concomitant]
     Active Substance: ACETAMINOPHEN\CAFFEINE\OPIUM
     Dosage: UNK
  6. AUGMENTIN [Suspect]
     Active Substance: AMOXICILLIN\CLAVULANATE POTASSIUM
     Indication: ANTIBIOTIC PROPHYLAXIS
     Dosage: 1 DF, 3X/DAY, AT MORNING, AT NOON AND AT EVENING
     Route: 048
     Dates: start: 20170327, end: 20170409
  7. AMIODARONE [Concomitant]
     Active Substance: AMIODARONE
     Dosage: 200 MG, 1X/DAY, 5 DAYS A WEEK
  8. ACEBUTOLOL /00405702/ [Concomitant]
     Active Substance: ACEBUTOLOL
     Dosage: 100 MG, 1X/DAY, AT MORNING
  9. ACTISKENAN [Concomitant]
     Active Substance: MORPHINE SULFATE
     Dosage: UNK, AS NEEDED

REACTIONS (3)
  - Rash [Not Recovered/Not Resolved]
  - Prostate cancer [Unknown]
  - Metastases to bone [Unknown]

NARRATIVE: CASE EVENT DATE: 20170419
